FAERS Safety Report 6332497-4 (Version None)
Quarter: 2009Q3

REPORT INFORMATION
  Report Type: 
  Country: None (occurrence: None)
  Receive Date: 20090828
  Receipt Date: 20080915
  Transmission Date: 20100115
  Serious: No
  Sender: FDA-Public Use
  Company Number: A0747763A

PATIENT
  Age: 23 Year
  Sex: Female

DRUGS (2)
  1. MALARONE [Suspect]
     Indication: MALARIA
     Route: 048
  2. ORAL CONTRACEPTIVE [Concomitant]

REACTIONS (1)
  - INSOMNIA [None]
